FAERS Safety Report 14871131 (Version 5)
Quarter: 2022Q4

REPORT INFORMATION
  Report Type: Report from Study
  Country: BE (occurrence: BE)
  Receive Date: 20180509
  Receipt Date: 20221031
  Transmission Date: 20230113
  Serious: Yes (Hospitalization)
  Sender: FDA-Public Use
  Company Number: PHHY2018BE001497

PATIENT
  Age: 58 Year
  Sex: Female

DRUGS (4)
  1. SANDOSTATIN LAR DEPOT [Suspect]
     Active Substance: OCTREOTIDE ACETATE
     Indication: Acromegaly
     Dosage: 20 MG, QMO (EVERY 28 DAYS)
     Route: 030
     Dates: start: 20190116
  2. SANDOSTATIN LAR DEPOT [Suspect]
     Active Substance: OCTREOTIDE ACETATE
     Dosage: 20 MG
     Route: 030
     Dates: start: 20220417
  3. SANDOSTATIN LAR DEPOT [Suspect]
     Active Substance: OCTREOTIDE ACETATE
     Dosage: 30 MG
     Route: 065
  4. SANDOSTATIN LAR DEPOT [Suspect]
     Active Substance: OCTREOTIDE ACETATE
     Dosage: 40 MG (2 X 20 MG)
     Route: 030
     Dates: start: 20220417

REACTIONS (3)
  - Spinal fracture [Unknown]
  - Fall [Unknown]
  - Product administration error [Unknown]
